FAERS Safety Report 7588558-5 (Version None)
Quarter: 2011Q3

REPORT INFORMATION
  Report Type: 
  Country: None (occurrence: None)
  Receive Date: 20110705
  Receipt Date: 20110623
  Transmission Date: 20111222
  Serious: Yes (Hospitalization, Other)
  Sender: FDA-Public Use
  Company Number: FR-GENZYME-THYM-1002552

PATIENT
  Age: 49 Year
  Sex: Male

DRUGS (8)
  1. TACROLIMUS [Concomitant]
     Dosage: 2 MG, QD
  2. MYCOPHENOLATE MEFETIL [Concomitant]
     Indication: PROPHYLAXIS AGAINST TRANSPLANT REJECTION
  3. PREDNISONE [Concomitant]
     Indication: PROPHYLAXIS AGAINST TRANSPLANT REJECTION
     Dosage: 10 MG, QD
  4. THYMOGLOBULIN [Suspect]
     Indication: PROPHYLAXIS AGAINST TRANSPLANT REJECTION
  5. TACROLIMUS [Concomitant]
     Indication: PROPHYLAXIS AGAINST TRANSPLANT REJECTION
     Dosage: 7 MG, QD
  6. PREDNISONE [Concomitant]
     Dosage: 15 MG, QD
  7. PREDNISONE [Concomitant]
     Dosage: 10 MG, QD
  8. TACROLIMUS [Concomitant]
     Dosage: 1 MG, QD

REACTIONS (6)
  - URINARY TRACT INFECTION [None]
  - DIABETES MELLITUS [None]
  - IMMUNE RECONSTITUTION SYNDROME [None]
  - HYPERTENSION [None]
  - MENINGITIS CRYPTOCOCCAL [None]
  - CYTOMEGALOVIRUS INFECTION [None]
